FAERS Safety Report 12214474 (Version 3)
Quarter: 2020Q3

REPORT INFORMATION
  Report Type: Report from Study
  Country: FI (occurrence: FI)
  Receive Date: 20160328
  Receipt Date: 20161115
  Transmission Date: 20201105
  Serious: Yes (Other)
  Sender: FDA-Public Use
  Company Number: FI-ROCHE-1636770

PATIENT
  Age: 63 Year
  Sex: Male

DRUGS (14)
  1. PRIMASPAN [Concomitant]
     Active Substance: ASPIRIN
     Route: 065
  2. EMCONCOR CHF [Concomitant]
     Route: 065
  3. LIPITOR [Concomitant]
     Active Substance: ATORVASTATIN CALCIUM
     Route: 065
  4. LANTUS [Concomitant]
     Active Substance: INSULIN GLARGINE
     Route: 065
  5. AMLODIPINE [Concomitant]
     Active Substance: AMLODIPINE BESYLATE
     Route: 065
  6. DIFORMIN RETARD [Concomitant]
     Active Substance: METFORMIN HYDROCHLORIDE
     Route: 065
  7. MICROLAX (FINLAND) [Concomitant]
  8. ALECTINIB. [Suspect]
     Active Substance: ALECTINIB
     Indication: LUNG ADENOCARCINOMA
  9. TRILEPTAL [Concomitant]
     Active Substance: OXCARBAZEPINE
     Route: 065
  10. BUVENTOL EASYHALER [Concomitant]
     Active Substance: ALBUTEROL SULFATE
  11. ALECTINIB. [Suspect]
     Active Substance: ALECTINIB
     Indication: NON-SMALL CELL LUNG CANCER
     Dosage: FOUR 150 MG CAPSULES TWICE A DAY (8 CAPSULES A DAY EQUAL TO 1200 MG/DAY)
     Route: 065
     Dates: start: 20150210
  12. LEVOLAC [Concomitant]
     Active Substance: LACTULOSE
     Route: 065
  13. OLMETEC [Concomitant]
     Active Substance: OLMESARTAN MEDOXOMIL
     Route: 065
  14. JANUVIA [Concomitant]
     Active Substance: SITAGLIPTIN PHOSPHATE
     Route: 065

REACTIONS (8)
  - Haemoptysis [Unknown]
  - Bronchitis [Unknown]
  - Haemothorax [Unknown]
  - Bronchitis [Recovered/Resolved]
  - Haematoma [Not Recovered/Not Resolved]
  - Empyema [Unknown]
  - Rales [Recovered/Resolved]
  - Influenza like illness [Recovered/Resolved]

NARRATIVE: CASE EVENT DATE: 201506
